FAERS Safety Report 12831045 (Version 2)
Quarter: 2016Q4

REPORT INFORMATION
  Report Type: Report from Study
  Country: SK (occurrence: SK)
  Receive Date: 20161007
  Receipt Date: 20161213
  Transmission Date: 20170207
  Serious: Yes (Death, Hospitalization)
  Sender: FDA-Public Use
  Company Number: SK-B.I. PHARMACEUTICALS,INC./RIDGEFIELD-2016-BI-14970BI

PATIENT
  Age: 74 Year
  Sex: Male
  Weight: 110 kg

DRUGS (14)
  1. SEREVENT DISKUS [Concomitant]
     Active Substance: SALMETEROL XINAFOATE
     Indication: CHRONIC OBSTRUCTIVE PULMONARY DISEASE
     Route: 055
     Dates: start: 20141111, end: 20160127
  2. SPIRIVA [Concomitant]
     Active Substance: TIOTROPIUM BROMIDE MONOHYDRATE
     Indication: CHRONIC OBSTRUCTIVE PULMONARY DISEASE
     Route: 055
     Dates: start: 20140509, end: 20160127
  3. FURON [Concomitant]
     Active Substance: FUROSEMIDE
     Indication: HYPERTENSION
     Dosage: ROUTE: PER OS
     Route: 048
     Dates: end: 20160127
  4. TENOX [Concomitant]
     Indication: HYPERTENSION
     Dosage: ROUTE: PER OS
     Route: 048
     Dates: end: 20160127
  5. CORONAL [Concomitant]
     Indication: MYOCARDIAL ISCHAEMIA
     Dosage: ROUTE: PER OS
     Route: 048
     Dates: end: 20160127
  6. ANOPYRIN [Concomitant]
     Active Substance: ASPIRIN
     Indication: MYOCARDIAL ISCHAEMIA
     Dosage: ROUTE: PER OS
     Route: 048
     Dates: end: 20160127
  7. BLINDED TIOTROPIUM BROMIDE+OLODATEROL [Suspect]
     Active Substance: OLODATEROL HYDROCHLORIDE\TIOTROPIUM BROMIDE MONOHYDRATE
     Indication: CHRONIC OBSTRUCTIVE PULMONARY DISEASE
     Route: 055
     Dates: start: 20150907
  8. ATROVENT [Concomitant]
     Active Substance: IPRATROPIUM BROMIDE
     Indication: CHRONIC OBSTRUCTIVE PULMONARY DISEASE
     Dosage: DAILY DOSE TEXT: P.P.
     Route: 055
     Dates: start: 20051216, end: 20160127
  9. ATORIS [Concomitant]
     Active Substance: ATORVASTATIN CALCIUM
     Indication: MYOCARDIAL ISCHAEMIA
     Dosage: ROUTE: PER OS
     Route: 048
     Dates: end: 20160127
  10. NOLPAZA [Concomitant]
     Active Substance: PANTOPRAZOLE SODIUM
     Indication: PROPHYLAXIS AGAINST GASTROINTESTINAL ULCER
     Dosage: ROUTE: PER OS
     Route: 048
     Dates: end: 20160127
  11. TOLURA [Concomitant]
     Indication: HYPERTENSION
     Dosage: ROUTE: PER OS
     Route: 048
     Dates: end: 20160127
  12. EUTHYROX [Concomitant]
     Active Substance: LEVOTHYROXINE SODIUM
     Indication: CHRONIC OBSTRUCTIVE PULMONARY DISEASE
     Dosage: ROUTE: PER OS
     Route: 048
     Dates: end: 20160127
  13. INSULIN [Concomitant]
     Active Substance: INSULIN NOS
     Indication: DIABETES MELLITUS
     Route: 058
     Dates: end: 20160127
  14. CORDILAN [Concomitant]
     Indication: MYOCARDIAL ISCHAEMIA
     Dosage: ROUTE: PER OS, DOSE PER APPLICATION AND DAILY DOSE: 175/175 MG
     Route: 048
     Dates: end: 20160127

REACTIONS (3)
  - Pneumonia [Fatal]
  - Diabetic foot [Unknown]
  - Respiratory failure [Fatal]

NARRATIVE: CASE EVENT DATE: 20160121
